FAERS Safety Report 5698041-X (Version None)
Quarter: 2008Q2

REPORT INFORMATION
  Report Type: 
  Country: None (occurrence: None)
  Receive Date: 20080404
  Receipt Date: 20080404
  Transmission Date: 20081010
  Serious: Yes (Disabling, Other)
  Sender: FDA-Public Use
  Company Number: None

PATIENT
  Age: 57 Year
  Sex: Female
  Weight: 61.2356 kg

DRUGS (1)
  1. LEVAQUIN [Suspect]
     Indication: HELICOBACTER INFECTION
     Dosage: 1 PILL 12 HOURS PO
     Route: 048
     Dates: start: 20080321, end: 20080401

REACTIONS (5)
  - ARTHRALGIA [None]
  - ERYTHEMA [None]
  - MYALGIA [None]
  - SWELLING FACE [None]
  - TENDON PAIN [None]
